FAERS Safety Report 24546263 (Version 3)
Quarter: 2024Q4

REPORT INFORMATION
  Report Type: Spontaneous
  Country: US (occurrence: US)
  Receive Date: 20241024
  Receipt Date: 20241129
  Transmission Date: 20250114
  Serious: No
  Sender: TAKEDA
  Company Number: US-TAKEDA-2024TUS107544

PATIENT
  Sex: Male
  Weight: 37 kg

DRUGS (1)
  1. VYVANSE [Suspect]
     Active Substance: LISDEXAMFETAMINE DIMESYLATE
     Indication: Attention deficit hyperactivity disorder
     Dosage: 10 MILLIGRAM, QD
     Dates: start: 202408

REACTIONS (6)
  - Behaviour disorder [Unknown]
  - Disturbance in attention [Unknown]
  - Defiant behaviour [Unknown]
  - Product dose omission issue [Unknown]
  - Product use complaint [Unknown]
  - Product physical issue [Unknown]
